FAERS Safety Report 21990566 (Version 2)
Quarter: 2023Q2

REPORT INFORMATION
  Report Type: Report from Study
  Country: US (occurrence: US)
  Receive Date: 20230214
  Receipt Date: 20230518
  Transmission Date: 20230721
  Serious: Yes (Hospitalization)
  Sender: FDA-Public Use
  Company Number: US-JAZZ-2022-US-002064

PATIENT
  Sex: Female

DRUGS (6)
  1. XYREM [Suspect]
     Active Substance: SODIUM OXYBATE
     Indication: Cataplexy
     Dosage: 3 GRAM, BID
     Route: 048
     Dates: start: 200508, end: 200708
  2. XYREM [Suspect]
     Active Substance: SODIUM OXYBATE
     Indication: Somnolence
     Dosage: DOSE ADJUSTMENT
     Route: 048
     Dates: start: 200708, end: 201905
  3. XYREM [Suspect]
     Active Substance: SODIUM OXYBATE
     Indication: Narcolepsy
     Dosage: 3 GRAM, BID
     Route: 048
     Dates: start: 201905
  4. MODAFINIL [Concomitant]
     Active Substance: MODAFINIL
     Indication: Product administration interrupted
     Dosage: UNK
     Dates: start: 20151001
  5. ADVIL [Concomitant]
     Active Substance: IBUPROFEN
     Indication: Product administration interrupted
     Dosage: UNK
     Dates: start: 20151001
  6. VITAMIN D3 [Concomitant]
     Active Substance: CHOLECALCIFEROL
     Indication: Product administration interrupted
     Dosage: UNK
     Dates: start: 20220101

REACTIONS (4)
  - Pre-eclampsia [Not Recovered/Not Resolved]
  - Gestational hypertension [Not Recovered/Not Resolved]
  - Hypertension [Not Recovered/Not Resolved]
  - Maternal exposure during pregnancy [Unknown]
